FAERS Safety Report 17468333 (Version 1)
Quarter: 2020Q1

REPORT INFORMATION
  Report Type: Spontaneous
  Country: US (occurrence: US)
  Receive Date: 20200227
  Receipt Date: 20200227
  Transmission Date: 20200409
  Serious: Yes (Disabling)
  Sender: FDA-Public Use
  Company Number: None

PATIENT
  Age: 56 Year
  Sex: Male
  Weight: 126.9 kg

DRUGS (6)
  1. ALTACE 5MG [Concomitant]
  2. EZETIMIBE 10MG TABLETS [Suspect]
     Active Substance: EZETIMIBE
     Indication: LOW DENSITY LIPOPROTEIN INCREASED
     Dosage: ?          QUANTITY:1 TABLET(S);?
     Route: 048
     Dates: start: 20200212, end: 20200227
  3. ASPIRIN 81MG [Concomitant]
     Active Substance: ASPIRIN
  4. METOPROLOL 100MG [Concomitant]
     Active Substance: METOPROLOL
  5. ATORVASTATIN 40MG [Concomitant]
     Active Substance: ATORVASTATIN
  6. COUMADIN 7.5MG [Concomitant]

REACTIONS (2)
  - Myalgia [None]
  - Amnesia [None]

NARRATIVE: CASE EVENT DATE: 20200221
